FAERS Safety Report 21959474 (Version 1)
Quarter: 2023Q1

REPORT INFORMATION
  Report Type: Spontaneous
  Country: CN (occurrence: CN)
  Receive Date: 20230206
  Receipt Date: 20230206
  Transmission Date: 20230417
  Serious: Yes (Other)
  Sender: FDA-Public Use
  Company Number: CN-ALLERGAN-2302940US

PATIENT
  Sex: Female

DRUGS (2)
  1. UNSPECIFIED INGREDIENT [Suspect]
     Active Substance: UNSPECIFIED INGREDIENT
     Indication: Otitis media
     Dosage: UNK
     Route: 001
  2. LEVOFLOXACIN [Suspect]
     Active Substance: LEVOFLOXACIN
     Indication: Otitis media
     Dosage: UNK
     Route: 001

REACTIONS (3)
  - Tinea infection [Recovered/Resolved]
  - Trichophytosis [Recovered/Resolved]
  - Off label use [Unknown]
